FAERS Safety Report 15213637 (Version 1)
Quarter: 2018Q3

REPORT INFORMATION
  Report Type: Report from Study
  Country: None (occurrence: IE)
  Receive Date: 20180730
  Receipt Date: 20180730
  Transmission Date: 20181010
  Serious: Yes (Death, Other)
  Sender: FDA-Public Use
  Company Number: IE-ABBVIE-15K-167-1435929-00

PATIENT
  Age: 53 Year
  Sex: Male
  Weight: 131 kg

DRUGS (1)
  1. HUMIRA [Suspect]
     Active Substance: ADALIMUMAB
     Indication: PSORIASIS
     Route: 065
     Dates: start: 20100517, end: 20101012

REACTIONS (4)
  - Malignant melanoma [Unknown]
  - Metastatic malignant melanoma [Fatal]
  - Anal ulcer [Unknown]
  - Nodular melanoma [Unknown]

NARRATIVE: CASE EVENT DATE: 20101015
